FAERS Safety Report 10046711 (Version 2)
Quarter: 2014Q2

REPORT INFORMATION
  Report Type: Spontaneous
  Country: US (occurrence: None)
  Receive Date: 20140326
  Receipt Date: 20140523
  Transmission Date: 20141212
  Serious: Yes (Other)
  Sender: FDA-Public Use
  Company Number: 2014P1002301

PATIENT
  Age: 19 Year
  Sex: Female

DRUGS (2)
  1. MYORISAN [Suspect]
     Dates: start: 20130919, end: 20140308
  2. UNSPECIFIED BIRTH CONTROL PILLS [Concomitant]

REACTIONS (3)
  - Pregnancy test positive [None]
  - Maternal exposure during pregnancy [None]
  - Treatment noncompliance [None]
